FAERS Safety Report 9826247 (Version 2)
Quarter: 2014Q1

REPORT INFORMATION
  Report Type: Spontaneous
  Country: US (occurrence: US)
  Receive Date: 20140117
  Receipt Date: 20140303
  Transmission Date: 20141002
  Serious: No
  Sender: FDA-Public Use
  Company Number: US-009507513-1401USA004398

PATIENT
  Age: 23 Year
  Sex: Female

DRUGS (1)
  1. NUVARING [Suspect]
     Dosage: VAGINAL .015/.12
     Route: 067
     Dates: start: 20140104

REACTIONS (2)
  - Device breakage [Recovered/Resolved]
  - No adverse event [Unknown]
